FAERS Safety Report 14933509 (Version 3)
Quarter: 2018Q2

REPORT INFORMATION
  Report Type: Spontaneous
  Country: US (occurrence: US)
  Receive Date: 20180524
  Receipt Date: 20180621
  Transmission Date: 20180711
  Serious: Yes (Hospitalization)
  Sender: FDA-Public Use
  Company Number: US-HORIZON-RAV-0075-2018

PATIENT
  Age: 45 Year
  Sex: Female

DRUGS (12)
  1. RAVICTI [Suspect]
     Active Substance: GLYCEROL PHENYLBUTYRATE
     Indication: UREA CYCLE DISORDER
     Dosage: 4 ML TID
     Route: 048
     Dates: start: 201703
  2. CEPHULAC [Concomitant]
     Active Substance: LACTULOSE
  3. ZOLOFT [Concomitant]
     Active Substance: SERTRALINE HYDROCHLORIDE
     Route: 048
  4. ZANAFLEX [Concomitant]
     Active Substance: TIZANIDINE HYDROCHLORIDE
     Indication: MUSCLE SPASMS
     Dosage: 4 MG EVERY 8 HOURS AS NEEDED
  5. DESYREL [Concomitant]
     Active Substance: TRAZODONE HYDROCHLORIDE
     Dosage: 50 MG NIGHTLY AS NEEDED
  6. WELLBUTRIN [Concomitant]
     Active Substance: BUPROPION HYDROCHLORIDE
     Route: 048
  7. MAXITROL [Concomitant]
     Active Substance: DEXAMETHASONE\NEOMYCIN SULFATE\POLYMYXIN B SULFATE
     Route: 047
  8. VALIUM [Concomitant]
     Active Substance: DIAZEPAM
     Dosage: 10 MG BID AS NEEDED
     Dates: start: 20180420
  9. MOTRIN [Concomitant]
     Active Substance: IBUPROFEN
     Indication: PAIN
     Dosage: 800 MG TID AS NEEDED
  10. ZYPREXA [Concomitant]
     Active Substance: OLANZAPINE
     Dosage: 1 TAB (2.5 MG) AFTER BREAKFAST, 1 TAB (7.5 MG) BEDTIME
     Dates: start: 20170818
  11. VITAMIN D3 [Concomitant]
     Active Substance: CHOLECALCIFEROL
     Route: 048
  12. CARNITOR [Concomitant]
     Active Substance: LEVOCARNITINE

REACTIONS (9)
  - Anxiety [Unknown]
  - Vomiting [Recovering/Resolving]
  - Metabolic encephalopathy [Recovering/Resolving]
  - Gastroenteritis viral [Recovering/Resolving]
  - Hypokalaemia [Recovering/Resolving]
  - Fibromyalgia [Unknown]
  - Depression [Unknown]
  - Mental status changes [Recovering/Resolving]
  - Hyperammonaemia [Recovered/Resolved]

NARRATIVE: CASE EVENT DATE: 201804
